FAERS Safety Report 6216782-2 (Version None)
Quarter: 2009Q2

REPORT INFORMATION
  Report Type: 
  Country: None (occurrence: None)
  Receive Date: 20090603
  Receipt Date: 20090603
  Transmission Date: 20091009
  Serious: No
  Sender: FDA-Public Use
  Company Number: None

PATIENT
  Age: 36 Year
  Sex: Female
  Weight: 101.6057 kg

DRUGS (1)
  1. DEPO-PROVERA [Suspect]
     Indication: CONTRACEPTION
     Dates: start: 20090513

REACTIONS (4)
  - FEELING ABNORMAL [None]
  - INJECTION SITE PAIN [None]
  - MUSCLE SPASMS [None]
  - PARAESTHESIA [None]
